FAERS Safety Report 7746135-7 (Version None)
Quarter: 2011Q3

REPORT INFORMATION
  Report Type: 
  Country: None (occurrence: None)
  Receive Date: 20110913
  Receipt Date: 20110831
  Transmission Date: 20111222
  Serious: Yes (Hospitalization)
  Sender: FDA-Public Use
  Company Number: US-ELI_LILLY_AND_COMPANY-US201103007204

PATIENT
  Sex: Female
  Weight: 70 kg

DRUGS (15)
  1. DIGOXIN [Concomitant]
     Dosage: .125 UNK, UNK
  2. LASIX [Concomitant]
  3. COZAAR [Concomitant]
  4. METAMUCIL-2 [Concomitant]
  5. VITAMIN D [Concomitant]
     Dosage: 1000 IU, UNK
  6. ASCORBIC ACID [Concomitant]
     Dosage: 500 MG, UNK
  7. VITAMIN B COMPLEX CAP [Concomitant]
  8. FORTEO [Suspect]
     Indication: OSTEOPOROSIS
     Dosage: 20 UG, QD
     Route: 058
     Dates: start: 20101011, end: 20110306
  9. COUMADIN [Concomitant]
     Dosage: 2.5 MG, QD
  10. TRAMADOL HYDROCHLORIDE [Concomitant]
     Dosage: 50 MG, TID
  11. LIDODERM [Concomitant]
  12. FISH OIL [Concomitant]
  13. ANTIVERT [Concomitant]
     Dosage: 12.5 MG, PRN
  14. PROTONIX [Concomitant]
  15. RESTORIL [Concomitant]

REACTIONS (5)
  - CONSTIPATION [None]
  - ABDOMINAL ABSCESS [None]
  - LARGE INTESTINE PERFORATION [None]
  - BACK PAIN [None]
  - DIVERTICULAR PERFORATION [None]
